FAERS Safety Report 6248297-X (Version None)
Quarter: 2009Q2

REPORT INFORMATION
  Report Type: 
  Country: None (occurrence: None)
  Receive Date: 20090629
  Receipt Date: 20090617
  Transmission Date: 20091009
  Serious: Yes (Other)
  Sender: FDA-Public Use
  Company Number: PHEH2008US04164

PATIENT
  Sex: Male
  Weight: 86.168 kg

DRUGS (3)
  1. AREDIA [Suspect]
     Dosage: 90MG
  2. ZOMETA [Suspect]
     Dosage: 4MG
  3. CHEMOTHERAPEUTICS NOS [Concomitant]

REACTIONS (8)
  - ANHEDONIA [None]
  - ANXIETY [None]
  - BONE DISORDER [None]
  - DISABILITY [None]
  - INJURY [None]
  - OSTEONECROSIS [None]
  - PAIN [None]
  - TOOTH EXTRACTION [None]
